FAERS Safety Report 8872949 (Version 1)
Quarter: 2012Q4

REPORT INFORMATION
  Report Type: 
  Country: CH (occurrence: CH)
  Receive Date: 20121030
  Receipt Date: 20121030
  Transmission Date: 20130627
  Serious: Yes (Hospitalization)
  Sender: FDA-Public Use
  Company Number: CH-009507513-1210CHE012135

PATIENT
  Age: 84 Year
  Sex: Male

DRUGS (2)
  1. JANUMET [Suspect]
     Dosage: 50mg/1000mg, bid
     Route: 048
  2. METFORMIN [Suspect]
     Dosage: 500 mg, bid
     Route: 048
     Dates: start: 201201

REACTIONS (10)
  - Metabolic acidosis [Unknown]
  - Hyperkalaemia [Unknown]
  - Blood creatinine increased [Unknown]
  - Anaemia [Unknown]
  - Pneumonia [Unknown]
  - Oliguria [Unknown]
  - Torticollis [Unknown]
  - Diarrhoea [Unknown]
  - Poisoning [Unknown]
  - Intentional overdose [Unknown]
